FAERS Safety Report 4500727-7 (Version None)
Quarter: 2004Q4

REPORT INFORMATION
  Report Type: 
  Country: None (occurrence: None)
  Receive Date: 20041112
  Receipt Date: 20041112
  Transmission Date: 20050328
  Serious: Yes (Life-Threatening)
  Sender: FDA-Public Use
  Company Number: None

PATIENT
  Sex: Male
  Weight: 53 kg

DRUGS (7)
  1. ETOPOSIDE [Suspect]
     Indication: HODGKIN'S DISEASE
     Dosage: 123 MG IV QD X 5 DAYS
     Route: 042
     Dates: start: 20000627, end: 20000701
  2. ETOPOSIDE [Suspect]
     Indication: HODGKIN'S DISEASE
     Dosage: 123 MG IV QD X 5 DAYS
     Route: 042
     Dates: start: 20000725, end: 20000729
  3. DOXORUBICIN [Concomitant]
  4. BLEOMYCIN [Concomitant]
  5. VINCRISTINE [Concomitant]
  6. METHOTREXATE [Concomitant]
  7. VINBLASTINE SULFATE [Concomitant]

REACTIONS (2)
  - MYELODYSPLASTIC SYNDROME [None]
  - STEM CELL TRANSPLANT [None]
